FAERS Safety Report 24890113 (Version 1)
Quarter: 2025Q1

REPORT INFORMATION
  Report Type: Spontaneous
  Country: CN (occurrence: CN)
  Receive Date: 20250127
  Receipt Date: 20250127
  Transmission Date: 20250409
  Serious: Yes (Other)
  Sender: BAYER HEALTHCARE PHARMACEUTICALS INC.
  Company Number: CN-BAYER-2025A012045

PATIENT
  Age: 43 Year
  Sex: Male
  Weight: 70 kg

DRUGS (1)
  1. ULTRAVIST [Suspect]
     Active Substance: IOPROMIDE
     Indication: Angiocardiogram
     Route: 042
     Dates: start: 20250106, end: 20250106

REACTIONS (9)
  - Dyspnoea [Recovering/Resolving]
  - Seizure [Recovering/Resolving]
  - Loss of consciousness [Recovered/Resolved]
  - Palpitations [Recovering/Resolving]
  - Ocular hyperaemia [Recovering/Resolving]
  - Dysphonia [Recovering/Resolving]
  - Face oedema [Recovering/Resolving]
  - Blood pressure systolic increased [Recovered/Resolved]
  - Blood pressure decreased [Recovered/Resolved]

NARRATIVE: CASE EVENT DATE: 20250106
